FAERS Safety Report 25199097 (Version 2)
Quarter: 2025Q2

REPORT INFORMATION
  Report Type: Spontaneous
  Country: PL (occurrence: PL)
  Receive Date: 20250415
  Receipt Date: 20250421
  Transmission Date: 20250717
  Serious: Yes (Other)
  Sender: NOVARTIS
  Company Number: PL-002147023-NVSC2025PL060778

PATIENT
  Age: 47 Year
  Sex: Male

DRUGS (2)
  1. DABRAFENIB [Suspect]
     Active Substance: DABRAFENIB
     Indication: Adjuvant therapy
     Route: 065
     Dates: start: 202308, end: 202408
  2. TRAMETINIB [Suspect]
     Active Substance: TRAMETINIB
     Indication: Adjuvant therapy
     Route: 065
     Dates: start: 202308, end: 202408

REACTIONS (2)
  - Metastases to liver [Unknown]
  - Malignant neoplasm progression [Unknown]

NARRATIVE: CASE EVENT DATE: 20231101
